FAERS Safety Report 7627333-X (Version None)
Quarter: 2011Q3

REPORT INFORMATION
  Report Type: 
  Country: None (occurrence: None)
  Receive Date: 20110721
  Receipt Date: 20110719
  Transmission Date: 20111222
  Serious: No
  Sender: FDA-Public Use
  Company Number: US-TEVA-291239USA

PATIENT
  Sex: Male
  Weight: 89.892 kg

DRUGS (6)
  1. FLUTICASONE PROPIONATE [Concomitant]
  2. TYLOX [Concomitant]
  3. PROAIR HFA [Suspect]
     Indication: PRODUCT USED FOR UNKNOWN INDICATION
     Route: 055
     Dates: start: 20110701
  4. ALPRAZOLAM [Concomitant]
  5. ZOLPIDEM TARTRATE [Concomitant]
  6. TRAZODONE HCL [Concomitant]

REACTIONS (1)
  - DRUG SCREEN POSITIVE [None]
